FAERS Safety Report 17821464 (Version 1)
Quarter: 2020Q2

REPORT INFORMATION
  Report Type: Spontaneous
  Country: US (occurrence: US)
  Receive Date: 20200525
  Receipt Date: 20200525
  Transmission Date: 20200714
  Serious: Yes (Other)
  Sender: FDA-Public Use
  Company Number: US-ASTRAZENECA-2018SE87429

PATIENT
  Age: 78 Year
  Sex: Female
  Weight: 80.7 kg

DRUGS (2)
  1. NEXIUM 24HR [Suspect]
     Active Substance: ESOMEPRAZOLE MAGNESIUM
     Indication: DYSPEPSIA
     Dosage: UNK, 1X/DAY (EVERY DAY IN THE MORNING)
     Route: 048
     Dates: end: 20180702
  2. NEXIUM 24HR [Suspect]
     Active Substance: ESOMEPRAZOLE MAGNESIUM
     Indication: DYSPEPSIA
     Dosage: 20 MG, 1X/DAY (EVERY MORNING BEFORE BREAKFAST)
     Route: 048

REACTIONS (2)
  - Pancreatic carcinoma [Unknown]
  - Product use issue [Unknown]
